FAERS Safety Report 6791030-3 (Version None)
Quarter: 2010Q2

REPORT INFORMATION
  Report Type: 
  Country: None (occurrence: None)
  Receive Date: 20100624
  Receipt Date: 20100621
  Transmission Date: 20101027
  Serious: Yes (Hospitalization)
  Sender: FDA-Public Use
  Company Number: US-BRISTOL-MYERS SQUIBB COMPANY-14663207

PATIENT
  Sex: Female

DRUGS (2)
  1. ABILIFY [Suspect]
     Indication: BIPOLAR I DISORDER
     Route: 048
     Dates: start: 20081201
  2. LAMICTAL [Suspect]

REACTIONS (2)
  - MANIA [None]
  - PREGNANCY [None]
